FAERS Safety Report 6130607-5 (Version None)
Quarter: 2009Q1

REPORT INFORMATION
  Report Type: 
  Country: None (occurrence: None)
  Receive Date: 20090325
  Receipt Date: 20090317
  Transmission Date: 20090719
  Serious: Yes (Other)
  Sender: FDA-Public Use
  Company Number: PHHY2009GB07349

PATIENT
  Sex: Female

DRUGS (1)
  1. CLOZARIL [Suspect]
     Indication: SCHIZOPHRENIA
     Dosage: UNK
     Route: 048
     Dates: start: 20081124, end: 20090223

REACTIONS (4)
  - INFLUENZA LIKE ILLNESS [None]
  - NASOPHARYNGITIS [None]
  - NEUTROPENIA [None]
  - URINARY TRACT INFECTION [None]
